FAERS Safety Report 12930123 (Version 1)
Quarter: 2016Q4

REPORT INFORMATION
  Report Type: Spontaneous
  Country: US (occurrence: US)
  Receive Date: 20161110
  Receipt Date: 20161110
  Transmission Date: 20170207
  Serious: No
  Sender: FDA-Public Use
  Company Number: US-BAUSCH-BL-2016-020133

PATIENT
  Age: 80 Year
  Sex: Male

DRUGS (2)
  1. MEPHYTON [Suspect]
     Active Substance: PHYTONADIONE
     Indication: PREOPERATIVE CARE
     Route: 048
     Dates: start: 20160622, end: 20160622
  2. MEPHYTON [Suspect]
     Active Substance: PHYTONADIONE
     Route: 048
     Dates: start: 20160817, end: 20160817

REACTIONS (1)
  - Drug ineffective [Unknown]

NARRATIVE: CASE EVENT DATE: 20160622
